FAERS Safety Report 9736226 (Version 2)
Quarter: 2014Q2

REPORT INFORMATION
  Report Type: Spontaneous
  Country: US (occurrence: US)
  Receive Date: 20131206
  Receipt Date: 20140423
  Transmission Date: 20141212
  Serious: Yes (Other)
  Sender: FDA-Public Use
  Company Number: US-ASTRAZENECA-2013SE87815

PATIENT
  Age: 53 Year
  Sex: Female
  Weight: 65.8 kg

DRUGS (15)
  1. SEROQUEL [Suspect]
     Indication: BIPOLAR DISORDER
     Route: 048
     Dates: start: 2009, end: 201310
  2. SEROQUEL [Suspect]
     Indication: BIPOLAR DISORDER
     Dosage: GENERIC, 400 MG BID
     Route: 048
     Dates: start: 2009, end: 201310
  3. SEROQUEL [Suspect]
     Indication: BIPOLAR DISORDER
     Dosage: 400 MG WHEN SHE WAKES UP A NIGHT
     Route: 048
  4. OMEPRAZOLE [Suspect]
     Indication: GASTROOESOPHAGEAL REFLUX DISEASE
     Route: 048
  5. XANAX [Concomitant]
     Indication: PANIC ATTACK
     Route: 048
     Dates: start: 19890101
  6. XANAX [Concomitant]
     Indication: ANXIETY
     Route: 048
     Dates: start: 19890101
  7. PROPANOLOL [Concomitant]
     Indication: MIGRAINE
     Route: 048
  8. PROPANOLOL [Concomitant]
     Indication: MITRAL VALVE PROLAPSE
     Route: 048
  9. ACYCLOVIR [Concomitant]
     Indication: HERPES VIRUS INFECTION
     Route: 048
  10. FLUOXETINE HCL [Concomitant]
     Route: 048
  11. MOTRIN [Concomitant]
     Indication: PAIN
     Dosage: UNKNOWN PRN
     Route: 048
  12. DILANTIN SODIUM EXTENDED RELEASE [Concomitant]
     Indication: CONVULSION
     Route: 048
  13. NEURONTIN [Concomitant]
     Route: 048
     Dates: start: 19890101, end: 20131109
  14. PEPCID [Concomitant]
     Route: 048
  15. TOPAMAX [Concomitant]
     Route: 048
     Dates: start: 19890101, end: 20131109

REACTIONS (12)
  - Cataract [Not Recovered/Not Resolved]
  - Blindness [Unknown]
  - Feeling abnormal [Unknown]
  - Middle insomnia [Unknown]
  - Diarrhoea [Recovered/Resolved]
  - Hyperhidrosis [Unknown]
  - Formication [Unknown]
  - Weight decreased [Unknown]
  - Malaise [Unknown]
  - Weight increased [Unknown]
  - Muscle twitching [Recovered/Resolved]
  - Intentional product misuse [Unknown]
